FAERS Safety Report 13470644 (Version 1)
Quarter: 2017Q2

REPORT INFORMATION
  Report Type: Other
  Country: FR (occurrence: FR)
  Receive Date: 20170424
  Receipt Date: 20170424
  Transmission Date: 20170830
  Serious: Yes (Hospitalization)
  Sender: FDA-Public Use
  Company Number: FR-AJANTA PHARMA USA INC.-1065740

PATIENT
  Age: 31 Year
  Sex: Male

DRUGS (2)
  1. ARIPIPRAZOLE (ANDA 206174) [Suspect]
     Active Substance: ARIPIPRAZOLE
     Indication: BIPOLAR DISORDER
     Dates: start: 201502
  2. LITHIUM CARBONATE ER [Suspect]
     Active Substance: LITHIUM CARBONATE
     Dates: start: 201502

REACTIONS (4)
  - Toxicity to various agents [Recovered/Resolved]
  - Cerebellar syndrome [Not Recovered/Not Resolved]
  - Pseudobulbar palsy [Not Recovered/Not Resolved]
  - Suicide attempt [Recovered/Resolved]

NARRATIVE: CASE EVENT DATE: 2015
